FAERS Safety Report 6606668-3 (Version None)
Quarter: 2010Q1

REPORT INFORMATION
  Report Type: 
  Country: None (occurrence: None)
  Receive Date: 20100226
  Receipt Date: 20100225
  Transmission Date: 20100710
  Serious: Yes (Hospitalization, Other)
  Sender: FDA-Public Use
  Company Number: JP-GILEAD-E2B_00000482

PATIENT
  Age: 57 Year
  Sex: Female

DRUGS (2)
  1. HEPSERA [Suspect]
     Indication: HEPATITIS B
     Dosage: 10MG PER DAY
     Route: 065
  2. LAMIVUDINE [Concomitant]
     Indication: HEPATITIS B
     Route: 065

REACTIONS (2)
  - FANCONI SYNDROME ACQUIRED [None]
  - OSTEOMALACIA [None]
